FAERS Safety Report 6339329-9 (Version None)
Quarter: 2009Q3

REPORT INFORMATION
  Report Type: 
  Country: None (occurrence: None)
  Receive Date: 20090903
  Receipt Date: 20090901
  Transmission Date: 20100115
  Serious: Yes (Hospitalization)
  Sender: FDA-Public Use
  Company Number: B0585560B

PATIENT
  Sex: Female
  Weight: 61 kg

DRUGS (6)
  1. LAPATINIB [Suspect]
     Dosage: 1250MG PER DAY
     Route: 048
     Dates: start: 20090618, end: 20090809
  2. DOCETAXEL [Suspect]
     Dosage: 100MG THREE TIMES PER WEEK
     Route: 042
     Dates: start: 20090731, end: 20090731
  3. ACIMAX [Concomitant]
     Dates: start: 20090718
  4. LOPERAMIDE [Concomitant]
     Dates: start: 20090619, end: 20090816
  5. CHOLECALCIFEROL [Concomitant]
     Indication: VITAMIN D DECREASED
     Dates: start: 20050101
  6. PARACETAMOL [Concomitant]
     Dates: start: 20050501

REACTIONS (11)
  - CAMPYLOBACTER INTESTINAL INFECTION [None]
  - DIARRHOEA [None]
  - DYSPNOEA EXERTIONAL [None]
  - FEBRILE NEUTROPENIA [None]
  - HYPOXIA [None]
  - INTERSTITIAL LUNG DISEASE [None]
  - NAUSEA [None]
  - OEDEMA [None]
  - PULMONARY CONGESTION [None]
  - PYREXIA [None]
  - VOMITING [None]
